FAERS Safety Report 12921109 (Version 1)
Quarter: 2016Q4

REPORT INFORMATION
  Report Type: Spontaneous
  Country: IN (occurrence: IN)
  Receive Date: 20161107
  Receipt Date: 20161107
  Transmission Date: 20170207
  Serious: Yes (Hospitalization)
  Sender: FDA-Public Use
  Company Number: IN-AKORN PHARMACEUTICALS-2016AKN00766

PATIENT
  Age: 25 Year
  Sex: Male
  Weight: 78 kg

DRUGS (3)
  1. ISOTRETINOIN [Suspect]
     Active Substance: ISOTRETINOIN
     Indication: ALOPECIA SCARRING
     Dosage: 20 MG, 1X/DAY
     Route: 048
  2. ISOTRETINOIN [Suspect]
     Active Substance: ISOTRETINOIN
     Dosage: 40 MG, 1X/DAY
     Route: 048
  3. UNSPECIFIED ANTIBACTERIAL WASHES [Concomitant]
     Indication: ALOPECIA SCARRING
     Route: 061

REACTIONS (1)
  - Myopathy [Recovered/Resolved]
